FAERS Safety Report 8953569 (Version 1)
Quarter: 2012Q4

REPORT INFORMATION
  Report Type: 
  Country: US (occurrence: US)
  Receive Date: 20121206
  Receipt Date: 20121206
  Transmission Date: 20130627
  Serious: No
  Sender: FDA-Public Use
  Company Number: US-PFIZER INC-2012302751

PATIENT
  Age: 71 Year
  Sex: Male

DRUGS (3)
  1. VIAGRA [Suspect]
     Indication: ERECTILE DYSFUNCTION
     Dosage: 50 mg, UNK
  2. VIAGRA [Suspect]
     Dosage: 100 mg, UNK
  3. VITAMIN E [Suspect]
     Dosage: UNK

REACTIONS (2)
  - Drug effect decreased [Unknown]
  - Spontaneous penile erection [Unknown]
